APPROVED DRUG PRODUCT: DRYTEC
Active Ingredient: TECHNETIUM TC-99M SODIUM PERTECHNETATE GENERATOR
Strength: 830-16600mCi/GENERATOR
Dosage Form/Route: SOLUTION;INTRAVENOUS, ORAL
Application: N017693 | Product #001
Applicant: GE HEALTHCARE
Approved: Approved Prior to Jan 1, 1982 | RLD: No | RS: No | Type: DISCN